FAERS Safety Report 18258130 (Version 2)
Quarter: 2020Q4

REPORT INFORMATION
  Report Type: Spontaneous
  Country: JP (occurrence: JP)
  Receive Date: 20200911
  Receipt Date: 20201001
  Transmission Date: 20210113
  Serious: Yes (Death, Life-Threatening, Hospitalization, Other)
  Sender: FDA-Public Use
  Company Number: JP-B.I. PHARMACEUTICALS,INC./RIDGEFIELD-2020-NB-040679

PATIENT
  Age: 90 Year
  Sex: Female
  Weight: 49.4 kg

DRUGS (2)
  1. TAKELDA [Concomitant]
     Active Substance: ASPIRIN\LANSOPRAZOLE
     Indication: MYOCARDIAL ISCHAEMIA
     Route: 065
     Dates: start: 20160315, end: 20200725
  2. PRAZAXA [Suspect]
     Active Substance: DABIGATRAN ETEXILATE MESYLATE
     Indication: ATRIAL FIBRILLATION
     Route: 048
     Dates: end: 20200725

REACTIONS (5)
  - Haemorrhage [Fatal]
  - Multiple organ dysfunction syndrome [Fatal]
  - Haemorrhage [Unknown]
  - Wound dehiscence [Fatal]
  - Cerebral infarction [Fatal]

NARRATIVE: CASE EVENT DATE: 20200725
